FAERS Safety Report 15230791 (Version 1)
Quarter: 2018Q3

REPORT INFORMATION
  Report Type: Spontaneous
  Country: US (occurrence: US)
  Receive Date: 20180802
  Receipt Date: 20180802
  Transmission Date: 20181010
  Serious: No
  Sender: FDA-Public Use
  Company Number: US-SA-2018SA208770

PATIENT
  Age: 32 Year
  Sex: Female
  Weight: 81.63 kg

DRUGS (1)
  1. DUPIXENT [Suspect]
     Active Substance: DUPILUMAB
     Indication: DERMATITIS ATOPIC
     Dosage: 300 MG, QOW
     Route: 058
     Dates: start: 201805

REACTIONS (5)
  - Erythema [Unknown]
  - Dry skin [Unknown]
  - Eczema [Unknown]
  - Pruritus [Unknown]
  - Pruritus [Unknown]

NARRATIVE: CASE EVENT DATE: 201805
